FAERS Safety Report 4724405-4 (Version None)
Quarter: 2005Q3

REPORT INFORMATION
  Report Type: 
  Country: None (occurrence: None)
  Receive Date: 20050721
  Receipt Date: 20050707
  Transmission Date: 20060218
  Serious: Yes (Hospitalization)
  Sender: FDA-Public Use
  Company Number: B0386190A

PATIENT
  Age: 75 Year
  Sex: Female

DRUGS (2)
  1. LITHIUM SALT  (LITHIUM SALT) [Suspect]
  2. BETA-BLOCKER [Concomitant]

REACTIONS (21)
  - AMNESIA [None]
  - BALANCE DISORDER [None]
  - BLOOD THYROID STIMULATING HORMONE INCREASED [None]
  - BRADYPHRENIA [None]
  - COGNITIVE DISORDER [None]
  - DEMENTIA ALZHEIMER'S TYPE [None]
  - DISTURBANCE IN ATTENTION [None]
  - DYSGRAPHIA [None]
  - FALL [None]
  - GAIT DISTURBANCE [None]
  - GENERAL PHYSICAL HEALTH DETERIORATION [None]
  - HEARING IMPAIRED [None]
  - MEMORY IMPAIRMENT [None]
  - METABOLIC DISORDER [None]
  - MOBILITY DECREASED [None]
  - MOTOR DYSFUNCTION [None]
  - OVERDOSE [None]
  - READING DISORDER [None]
  - RENAL IMPAIRMENT [None]
  - THERAPEUTIC AGENT TOXICITY [None]
  - UPPER LIMB FRACTURE [None]
